FAERS Safety Report 5034511-5 (Version None)
Quarter: 2006Q2

REPORT INFORMATION
  Report Type: 
  Country: None (occurrence: None)
  Receive Date: 20060621
  Receipt Date: 20060612
  Transmission Date: 20061013
  Serious: Yes (Other)
  Sender: FDA-Public Use
  Company Number: 2006-06-0633

PATIENT
  Age: 71 Year
  Sex: Female

DRUGS (1)
  1. PEG-INTRON [Suspect]
     Indication: HEPATITIS C
     Dosage: 80 UG SUBCUTANEOUS
     Route: 058
     Dates: start: 20050628, end: 20050930

REACTIONS (1)
  - INTERSTITIAL LUNG DISEASE [None]
